FAERS Safety Report 4275974-2 (Version None)
Quarter: 2004Q1

REPORT INFORMATION
  Report Type: 
  Country: None (occurrence: None)
  Receive Date: 20040121
  Receipt Date: 20030424
  Transmission Date: 20041129
  Serious: No
  Sender: FDA-Public Use
  Company Number: US-GLAXOSMITHKLINE-A0406214A

PATIENT
  Age: 31 Year
  Sex: Male

DRUGS (2)
  1. VALTREX [Suspect]
     Dosage: 2G PER DAY
     Route: 048
  2. PREDNISONE [Concomitant]

REACTIONS (5)
  - ARTHRALGIA [None]
  - DIZZINESS [None]
  - DRUG INEFFECTIVE [None]
  - NEUROPATHY [None]
  - OEDEMA PERIPHERAL [None]
